FAERS Safety Report 8832501 (Version 2)
Quarter: 2012Q4

REPORT INFORMATION
  Report Type: 
  Country: US (occurrence: US)
  Receive Date: 20121010
  Receipt Date: 20121227
  Transmission Date: 20130627
  Serious: No
  Sender: FDA-Public Use
  Company Number: US-PFIZER INC-2012250539

PATIENT
  Age: 44 Year
  Sex: Male
  Weight: 86.17 kg

DRUGS (7)
  1. LYRICA [Suspect]
     Indication: REFLEX SYMPATHETIC DYSTROPHY
     Dosage: 100 mg, 3x/day
     Route: 048
     Dates: start: 20120206
  2. LYRICA [Suspect]
     Indication: PAIN IN UPPER EXTREMITIES
     Dosage: 150 mg, 3x/day
     Route: 048
  3. LYRICA [Suspect]
     Indication: NEUROPATHIC PAIN
     Dosage: 100 mg, 3x/day
     Route: 048
  4. CYMBALTA [Suspect]
     Indication: NEUROPATHY
     Dosage: 60 mg, 3x/day
     Route: 048
     Dates: start: 20120206
  5. NORCO [Concomitant]
     Indication: PAIN
     Dosage: 10/325 mg
     Route: 048
     Dates: start: 20120206
  6. AMBIEN [Concomitant]
     Indication: SLEEP PROBLEM
     Dosage: 10 mg, daily QHS
     Route: 048
     Dates: start: 20120206
  7. AMBIEN [Concomitant]
     Indication: INSOMNIA

REACTIONS (2)
  - Muscle twitching [Recovered/Resolved]
  - Activities of daily living impaired [Recovered/Resolved]
